FAERS Safety Report 22023059 (Version 1)
Quarter: 2023Q1

REPORT INFORMATION
  Report Type: Spontaneous
  Country: US (occurrence: None)
  Receive Date: 20230222
  Receipt Date: 20230222
  Transmission Date: 20230418
  Serious: Yes (Other)
  Sender: FDA-Public Use
  Company Number: US-ROCHE-3269898

PATIENT
  Age: 76 Year
  Sex: Male
  Weight: 83 kg

DRUGS (2)
  1. TECENTRIQ [Suspect]
     Active Substance: ATEZOLIZUMAB
     Indication: Small cell lung cancer
     Dosage: LAST INFUSION WAS ON 20-DEC-2022
     Route: 041
     Dates: start: 20210914
  2. TECENTRIQ [Suspect]
     Active Substance: ATEZOLIZUMAB
     Dosage: STOP DATE 14/MAR/2023
     Route: 042
     Dates: start: 20211021

REACTIONS (2)
  - Humerus fracture [Unknown]
  - Fall [Unknown]

NARRATIVE: CASE EVENT DATE: 20230119
